FAERS Safety Report 9367971 (Version 2)
Quarter: 2013Q2

REPORT INFORMATION
  Report Type: Spontaneous
  Country: US (occurrence: US)
  Receive Date: 20130625
  Receipt Date: 20130625
  Transmission Date: 20140414
  Serious: No
  Sender: FDA-Public Use
  Company Number: US-ASTELLAS-2013US000518

PATIENT
  Sex: Female
  Weight: 63 kg

DRUGS (5)
  1. VESICARE [Suspect]
     Indication: HYPERTONIC BLADDER
     Dosage: UNK
     Route: 065
     Dates: start: 200705, end: 2007
  2. TOVIAZ [Suspect]
     Indication: HYPERTONIC BLADDER
     Dosage: 8 MG, UID/QD
     Route: 048
     Dates: start: 201011
  3. TOVIAZ [Suspect]
     Dosage: 4 MG, UID/QD
     Route: 048
     Dates: end: 201201
  4. HIGH CHOLESTEROL MEDICATION [Suspect]
     Indication: BLOOD CHOLESTEROL INCREASED
     Dosage: UNK
     Route: 065
  5. UNSPECIFIED OVERACTIVE BLADDER MEDICATION [Concomitant]
     Indication: HYPERTONIC BLADDER
     Dosage: UNK
     Route: 065

REACTIONS (7)
  - Dysphagia [Recovered/Resolved]
  - Chest pain [Recovered/Resolved]
  - Pain in extremity [Recovered/Resolved]
  - Dizziness [Recovered/Resolved]
  - Dry mouth [Recovered/Resolved]
  - Dry eye [Recovered/Resolved]
  - Disorientation [Recovered/Resolved]
